FAERS Safety Report 10446289 (Version 1)
Quarter: 2014Q3

REPORT INFORMATION
  Report Type: Spontaneous
  Country: IL (occurrence: IL)
  Receive Date: 20140911
  Receipt Date: 20140911
  Transmission Date: 20150326
  Serious: Yes (Hospitalization)
  Sender: FDA-Public Use
  Company Number: IL-AMGEN-ISRSP2014068680

PATIENT
  Age: 67 Year
  Sex: Female

DRUGS (2)
  1. CIPRALEX [Concomitant]
     Active Substance: ESCITALOPRAM OXALATE
  2. XGEVA [Suspect]
     Active Substance: DENOSUMAB
     Indication: METASTASES TO BONE
     Dosage: UNK UNK, CYCLICAL
     Route: 065
     Dates: start: 201407

REACTIONS (7)
  - Asthenia [Unknown]
  - Convulsion [Unknown]
  - Incontinence [Unknown]
  - Influenza like illness [Unknown]
  - Foaming at mouth [Unknown]
  - Eye movement disorder [Unknown]
  - Syncope [Unknown]
